FAERS Safety Report 7505809-3 (Version None)
Quarter: 2011Q2

REPORT INFORMATION
  Report Type: 
  Country: None (occurrence: None)
  Receive Date: 20110526
  Receipt Date: 20110516
  Transmission Date: 20111010
  Serious: Yes (Hospitalization)
  Sender: FDA-Public Use
  Company Number: JP-ELI_LILLY_AND_COMPANY-JP201104005611

PATIENT
  Sex: Female
  Weight: 66.8 kg

DRUGS (11)
  1. ADALAT CR                               /SCH/ [Concomitant]
     Indication: HYPERTENSION
     Dosage: UNK
  2. URSO 250 [Concomitant]
     Indication: HEPATIC FUNCTION ABNORMAL
     Dosage: UNK
  3. CORTRIL [Concomitant]
     Indication: PITUITARY-DEPENDENT CUSHING'S SYNDROME
     Dosage: UNK
  4. TERIPARATIDE [Suspect]
     Indication: OSTEOPOROSIS
     Dosage: 20 UG, UNK
     Route: 058
     Dates: start: 20110315, end: 20110328
  5. LIVALO [Concomitant]
     Indication: HYPERCHOLESTEROLAEMIA
     Dosage: UNK
  6. OLMESARTAN MEDOXOMIL [Concomitant]
     Indication: HYPERTENSION
     Dosage: UNK
  7. OPEPRIM [Concomitant]
     Indication: PITUITARY-DEPENDENT CUSHING'S SYNDROME
     Dosage: UNK
     Dates: end: 20110405
  8. OMEPRAZOLE [Concomitant]
     Indication: GASTRIC ULCER
     Dosage: UNK
  9. DESMOPRESSIN ACETATE [Concomitant]
     Indication: DIABETES INSIPIDUS
     Dosage: UNK
     Route: 045
  10. LEVOTHYROXINE SODIUM [Concomitant]
     Indication: HYPOTHYROIDISM
     Dosage: UNK
  11. ZETIA [Concomitant]
     Indication: HYPERCHOLESTEROLAEMIA
     Dosage: UNK

REACTIONS (2)
  - RENAL IMPAIRMENT [None]
  - NAUSEA [None]
